FAERS Safety Report 16237137 (Version 1)
Quarter: 2019Q2

REPORT INFORMATION
  Report Type: Spontaneous
  Country: US (occurrence: US)
  Receive Date: 20190425
  Receipt Date: 20190425
  Transmission Date: 20190711
  Serious: No
  Sender: FDA-Public Use
  Company Number: US-JNJFOC-20190400901

PATIENT
  Age: 36 Month
  Sex: Female
  Weight: 13.61 kg

DRUGS (1)
  1. TYLENOL CHILD CHEWABLE [Suspect]
     Active Substance: ACETAMINOPHEN
     Indication: INFLUENZA
     Route: 048

REACTIONS (1)
  - Inappropriate schedule of product administration [Unknown]
